FAERS Safety Report 11626764 (Version 1)
Quarter: 2015Q4

REPORT INFORMATION
  Report Type: Report from Study
  Country: GB (occurrence: GB)
  Receive Date: 20151013
  Receipt Date: 20151013
  Transmission Date: 20160304
  Serious: Yes (Death, Hospitalization, Other)
  Sender: FDA-Public Use
  Company Number: GB-UCBSA-2015032213

PATIENT
  Age: 71 Year
  Sex: Male
  Weight: 68 kg

DRUGS (2)
  1. METHOTREXATE [Suspect]
     Active Substance: METHOTREXATE
     Indication: RHEUMATOID ARTHRITIS
  2. CERTOLIZUMAB PEGOL RA [Suspect]
     Active Substance: CERTOLIZUMAB PEGOL
     Indication: RHEUMATOID ARTHRITIS
     Dosage: 200 MG
     Route: 058
     Dates: start: 20130514, end: 20140515

REACTIONS (6)
  - Pneumocystis jirovecii pneumonia [Fatal]
  - Rheumatoid arthritis [Fatal]
  - Pulmonary fibrosis [Fatal]
  - Pneumonia viral [Fatal]
  - Drug therapy [Fatal]
  - Sepsis [Fatal]

NARRATIVE: CASE EVENT DATE: 20140908
